FAERS Safety Report 18206435 (Version 2)
Quarter: 2020Q3

REPORT INFORMATION
  Report Type: Spontaneous
  Country: DE (occurrence: DE)
  Receive Date: 20200828
  Receipt Date: 20200916
  Transmission Date: 20201103
  Serious: Yes (Hospitalization, Other)
  Sender: FDA-Public Use
  Company Number: DE-AMGEN-DEUSP2020134319

PATIENT
  Age: 13 Year
  Sex: Male

DRUGS (4)
  1. PROLIA [Suspect]
     Active Substance: DENOSUMAB
     Dosage: 60 MILLIGRAM, Q3MO
     Route: 065
  2. PROLIA [Suspect]
     Active Substance: DENOSUMAB
     Dosage: 60 MILLIGRAM, QMO
     Route: 065
     Dates: end: 201401
  3. PROLIA [Suspect]
     Active Substance: DENOSUMAB
     Indication: BONE GIANT CELL TUMOUR MALIGNANT
     Dosage: 60 MILLIGRAM, ON DAYS 1, 8, 15, 28
     Route: 065
     Dates: start: 201212
  4. PROLIA [Suspect]
     Active Substance: DENOSUMAB
     Dosage: UNK
     Route: 065
     Dates: start: 201609, end: 201704

REACTIONS (9)
  - Renal failure [Unknown]
  - Hypercalcaemia [Recovered/Resolved]
  - Spinal cord disorder [Unknown]
  - Metastases to lung [Recovering/Resolving]
  - Hypertension [Unknown]
  - Disease progression [Not Recovered/Not Resolved]
  - Off label use [Unknown]
  - Bone giant cell tumour [Recovering/Resolving]
  - Nephrocalcinosis [Unknown]

NARRATIVE: CASE EVENT DATE: 201212
